FAERS Safety Report 19827429 (Version 1)
Quarter: 2021Q3

REPORT INFORMATION
  Report Type: Spontaneous
  Country: US (occurrence: US)
  Receive Date: 20210914
  Receipt Date: 20210914
  Transmission Date: 20211014
  Serious: Yes (Other)
  Sender: FDA-Public Use
  Company Number: US-GLAXOSMITHKLINE-US2021193123

PATIENT
  Age: 73 Year
  Sex: Female

DRUGS (1)
  1. ZEJULA [Suspect]
     Active Substance: NIRAPARIB
     Indication: OVARIAN CANCER
     Dosage: 200 MG, QD
     Dates: start: 20210821

REACTIONS (5)
  - Blood glucose decreased [Unknown]
  - Renal impairment [Unknown]
  - Dehydration [Unknown]
  - Constipation [Unknown]
  - Heart rate increased [Unknown]

NARRATIVE: CASE EVENT DATE: 202108
